FAERS Safety Report 15367072 (Version 2)
Quarter: 2018Q3

REPORT INFORMATION
  Report Type: Spontaneous
  Country: JP (occurrence: JP)
  Receive Date: 20180910
  Receipt Date: 20180918
  Transmission Date: 20181010
  Serious: Yes (Death, Other)
  Sender: FDA-Public Use
  Company Number: JP-PFIZER INC-2018364288

PATIENT
  Age: 86 Year
  Sex: Male

DRUGS (31)
  1. LANSOPRAZOLE. [Suspect]
     Active Substance: LANSOPRAZOLE
     Dosage: 15 MG, QD
     Route: 048
     Dates: end: 20180716
  2. POTASSIUM CANRENOATE [Suspect]
     Active Substance: CANRENOATE POTASSIUM
     Dosage: 100 MG, QD
     Route: 042
     Dates: start: 20180531, end: 20180607
  3. PYRAZINAMIDE. [Suspect]
     Active Substance: PYRAZINAMIDE
     Dosage: 1 G, QD
     Route: 048
     Dates: start: 20180602, end: 20180618
  4. STREPTOMYCIN SULFATE. [Suspect]
     Active Substance: STREPTOMYCIN SULFATE
     Indication: PULMONARY TUBERCULOSIS
     Dosage: 0.75 G, QD
     Route: 030
     Dates: start: 20180320, end: 20180527
  5. DELTYBA [Suspect]
     Active Substance: DELAMANID
     Indication: PULMONARY TUBERCULOSIS
     Dosage: 200 MG, QD
     Route: 048
     Dates: start: 20180607, end: 20180717
  6. ENVIOMYCIN SULFATE [Suspect]
     Active Substance: ENVIOMYCIN SULFATE
     Indication: PULMONARY TUBERCULOSIS
     Dosage: 1 G, QD
     Route: 030
     Dates: start: 20180530, end: 20180718
  7. BISOPROLOL FUMARATE. [Suspect]
     Active Substance: BISOPROLOL FUMARATE
     Dosage: 0.625 MG, QD
     Route: 048
     Dates: end: 20180716
  8. MECOBALAMIN [Suspect]
     Active Substance: METHYLCOBALAMIN
     Dosage: 1 MG, QD
     Route: 048
     Dates: end: 20180716
  9. DOBUTAMINE HYDROCHLORIDE. [Suspect]
     Active Substance: DOBUTAMINE HYDROCHLORIDE
     Dosage: 216 MG, QD
     Route: 042
     Dates: start: 20170717, end: 20180718
  10. METOCLOPRAMIDE. [Suspect]
     Active Substance: METOCLOPRAMIDE
     Dosage: 10 MG, QD
     Route: 042
     Dates: start: 20180709, end: 20180718
  11. PIPERACILLIN SODIUM, TAZOBACTAM SODIUM [Suspect]
     Active Substance: PIPERACILLIN SODIUM\TAZOBACTAM SODIUM
     Dosage: 13.5 G, QD
     Route: 042
     Dates: start: 20180606, end: 20180611
  12. DOPAMINE HYDROCHLORIDE. [Suspect]
     Active Substance: DOPAMINE HYDROCHLORIDE
     Dosage: 720 MG, QD
     Route: 042
     Dates: start: 20170717, end: 20180718
  13. CRAVIT [Suspect]
     Active Substance: LEVOFLOXACIN
     Indication: PULMONARY TUBERCULOSIS
     Dosage: 500 MG, QD
     Route: 048
     Dates: start: 20180320, end: 20180718
  14. PYRAZINAMIDE. [Suspect]
     Active Substance: PYRAZINAMIDE
     Indication: PULMONARY TUBERCULOSIS
     Dosage: 1 G, QD
     Route: 048
     Dates: start: 20180309, end: 20180319
  15. AMINOSALICYLATE CALCIUM [Suspect]
     Active Substance: AMINOSALICYLATE CALCIUM
     Indication: PULMONARY TUBERCULOSIS
     Dosage: 10 G, QD
     Route: 048
     Dates: start: 20180528, end: 20180601
  16. CYCLOSERINE. [Suspect]
     Active Substance: CYCLOSERINE
     Indication: PULMONARY TUBERCULOSIS
     Dosage: 500 MG, QD
     Route: 048
     Dates: start: 20180528, end: 20180627
  17. PREDNISOLONE. [Suspect]
     Active Substance: PREDNISOLONE
     Dosage: 20 MG, QD
     Route: 042
     Dates: start: 20180615, end: 20180718
  18. SAMSCA [Suspect]
     Active Substance: TOLVAPTAN
     Dosage: 3.725 MG, QD
     Route: 048
     Dates: start: 20180714, end: 20180716
  19. ETHAMBUTOL DIHYDROCHLORIDE [Suspect]
     Active Substance: ETHAMBUTOL HYDROCHLORIDE
     Indication: PULMONARY TUBERCULOSIS
     Dosage: 750 MG, QD
     Route: 048
     Dates: start: 20180320, end: 20180527
  20. POLAPREZINC [Suspect]
     Active Substance: POLAPREZINC
     Dosage: 150 MG, QD
     Route: 048
     Dates: end: 20180716
  21. FAMOTIDINE. [Suspect]
     Active Substance: FAMOTIDINE
     Dosage: 40 MG, QD
     Route: 042
     Dates: start: 20180528, end: 20180607
  22. FUROSEMIDE. [Suspect]
     Active Substance: FUROSEMIDE
     Dosage: 20 MG, QD
     Route: 042
     Dates: start: 20180607, end: 20180718
  23. DOBUTAMINE HYDROCHLORIDE. [Suspect]
     Active Substance: DOBUTAMINE HYDROCHLORIDE
     Dosage: 648 MG, QD
     Route: 042
     Dates: start: 20170717, end: 20180718
  24. FEBURIC [Suspect]
     Active Substance: FEBUXOSTAT
     Dosage: 20 MG, QD
     Route: 048
     Dates: end: 20180716
  25. METOCLOPRAMIDE. [Suspect]
     Active Substance: METOCLOPRAMIDE
     Dosage: 10 MG, QD
     Route: 042
     Dates: start: 20180601, end: 20180607
  26. FOLIC ACID. [Suspect]
     Active Substance: FOLIC ACID
     Dosage: 10 MG, QD
     Route: 048
     Dates: end: 20180716
  27. BROTIZOLAM [Suspect]
     Active Substance: BROTIZOLAM
     Dosage: 0.125 MG, UNK
     Route: 048
     Dates: end: 20180716
  28. CEFTAZIDIME. [Suspect]
     Active Substance: CEFTAZIDIME
     Dosage: 2 G, QD
     Route: 042
     Dates: start: 20180612, end: 20180625
  29. ZYVOX [Suspect]
     Active Substance: LINEZOLID
     Indication: PULMONARY TUBERCULOSIS
     Dosage: 1.2 G, QD
     Route: 041
     Dates: start: 20180626, end: 20180717
  30. RIFAMPICIN [Suspect]
     Active Substance: RIFAMPIN
     Indication: PULMONARY TUBERCULOSIS
     Dosage: 450 MG, QD
     Route: 048
     Dates: start: 20180309, end: 20180527
  31. DOPAMINE HYDROCHLORIDE. [Suspect]
     Active Substance: DOPAMINE HYDROCHLORIDE
     Dosage: 360 MG, QD
     Route: 042
     Dates: start: 20180717, end: 20180718

REACTIONS (2)
  - Haematuria [Fatal]
  - Pancytopenia [Fatal]

NARRATIVE: CASE EVENT DATE: 20180717
